FAERS Safety Report 7288270-6 (Version None)
Quarter: 2011Q1

REPORT INFORMATION
  Report Type: 
  Country: None (occurrence: None)
  Receive Date: 20110211
  Receipt Date: 20110208
  Transmission Date: 20110831
  Serious: Yes (Death, Other)
  Sender: FDA-Public Use
  Company Number: AU-GENZYME-FLUD-1000713

PATIENT

DRUGS (5)
  1. CAMPATH [Suspect]
     Indication: BONE MARROW CONDITIONING REGIMEN
     Dosage: UNK
     Route: 065
  2. FLUDARA [Suspect]
     Indication: BONE MARROW CONDITIONING REGIMEN
     Dosage: 25 MG/M2 X 5
     Route: 065
  3. CYCLOSPORINE [Concomitant]
     Indication: PROPHYLAXIS AGAINST GRAFT VERSUS HOST DISEASE
     Route: 042
  4. IMMUNE GLOBULIN NOS [Concomitant]
     Indication: BLOOD IMMUNOGLOBULIN G NORMAL
     Dosage: GIVEN WEEKLY UNTIL DAY 100 BASED ON IGG LEVELS
     Route: 042
  5. THYMOGLOBULIN [Suspect]
     Indication: BONE MARROW CONDITIONING REGIMEN
     Dosage: UNK
     Route: 065

REACTIONS (3)
  - CYTOMEGALOVIRUS VIRAEMIA [None]
  - ACUTE GRAFT VERSUS HOST DISEASE [None]
  - VENOOCCLUSIVE LIVER DISEASE [None]
